FAERS Safety Report 14111916 (Version 1)
Quarter: 2017Q4

REPORT INFORMATION
  Report Type: Spontaneous
  Country: US (occurrence: US)
  Receive Date: 20171020
  Receipt Date: 20171020
  Transmission Date: 20180321
  Serious: No
  Sender: FDA-Public Use
  Company Number: US-ASTRAZENECA-2017SF04264

PATIENT
  Sex: Male

DRUGS (2)
  1. BEVESPI AEROSPHERE [Suspect]
     Active Substance: FORMOTEROL FUMARATE\GLYCOPYRROLATE
     Indication: CHRONIC OBSTRUCTIVE PULMONARY DISEASE
     Dosage: DOSE AND FREQUENCY UNKNOWN
     Route: 055
     Dates: start: 2017, end: 201710
  2. SYMBICORT [Suspect]
     Active Substance: BUDESONIDE\FORMOTEROL FUMARATE DIHYDRATE
     Dosage: DOSE AND FREQUENCY UNKNOWN UNKNOWN
     Route: 055
     Dates: start: 201710

REACTIONS (2)
  - Urinary retention [Unknown]
  - Dysuria [Unknown]

NARRATIVE: CASE EVENT DATE: 20171009
